FAERS Safety Report 19061122 (Version 2)
Quarter: 2021Q3

REPORT INFORMATION
  Report Type: Spontaneous
  Country: US (occurrence: US)
  Receive Date: 20210326
  Receipt Date: 20210816
  Transmission Date: 20211014
  Serious: No
  Sender: FDA-Public Use
  Company Number: US-SA-2021SA096629

PATIENT
  Age: 59 Year
  Sex: Female

DRUGS (1)
  1. AUBAGIO [Suspect]
     Active Substance: TERIFLUNOMIDE
     Indication: MULTIPLE SCLEROSIS
     Dosage: 14 MG, QD
     Route: 048
     Dates: start: 20181019

REACTIONS (6)
  - Fatigue [Unknown]
  - Fall [Unknown]
  - Balance disorder [Unknown]
  - Condition aggravated [Unknown]
  - Dyspepsia [Unknown]
  - Cognitive disorder [Unknown]
